FAERS Safety Report 5283709-X (Version None)
Quarter: 2007Q2

REPORT INFORMATION
  Report Type: 
  Country: None (occurrence: None)
  Receive Date: 20070402
  Receipt Date: 20070312
  Transmission Date: 20071010
  Serious: Yes (Hospitalization, Disabling)
  Sender: FDA-Public Use
  Company Number: US-SANOFI-SYNTHELABO-A03200702184

PATIENT
  Sex: Male

DRUGS (2)
  1. EFFEXOR [Concomitant]
     Indication: DRUG USE FOR UNKNOWN INDICATION
     Route: 065
  2. AMBIEN [Suspect]
     Indication: INSOMNIA
     Dosage: 10 TO 20 MG UNK
     Route: 048
     Dates: start: 20010101, end: 20020101

REACTIONS (7)
  - AMNESIA [None]
  - COGNITIVE DISORDER [None]
  - DRUG ABUSER [None]
  - GAIT DISTURBANCE [None]
  - ROAD TRAFFIC ACCIDENT [None]
  - SLEEP WALKING [None]
  - TRAUMATIC BRAIN INJURY [None]
